FAERS Safety Report 6464303-1 (Version None)
Quarter: 2009Q4

REPORT INFORMATION
  Report Type: 
  Country: None (occurrence: None)
  Receive Date: 20091201
  Receipt Date: 20091125
  Transmission Date: 20100525
  Serious: Yes (Hospitalization)
  Sender: FDA-Public Use
  Company Number: JP-BAYER-200913781BYL

PATIENT
  Age: 80 Year
  Sex: Female

DRUGS (7)
  1. ASPIRIN [Suspect]
     Indication: ANTICOAGULANT THERAPY
     Dosage: TOTAL DAILY DOSE: 100 MG  UNIT DOSE: 100 MG
     Route: 048
     Dates: start: 20070629, end: 20080717
  2. ASPIRIN [Suspect]
     Dosage: TOTAL DAILY DOSE: 100 MG  UNIT DOSE: 100 MG
     Route: 048
     Dates: start: 20080724, end: 20090203
  3. ASPIRIN [Suspect]
     Dosage: TOTAL DAILY DOSE: 100 MG  UNIT DOSE: 100 MG
     Route: 048
     Dates: start: 20090208
  4. WARFARIN SODIUM [Suspect]
     Indication: ANTICOAGULANT THERAPY
     Dosage: UNIT DOSE: 1 MG
     Route: 048
     Dates: start: 20070827, end: 20080220
  5. WARFARIN SODIUM [Suspect]
     Dosage: UNIT DOSE: 1 MG
     Route: 048
     Dates: start: 20090208
  6. WARFARIN SODIUM [Suspect]
     Dosage: UNIT DOSE: 1 MG
     Route: 048
     Dates: start: 20080221, end: 20090203
  7. WARFARIN SODIUM [Concomitant]
     Indication: ANTICOAGULANT THERAPY
     Dosage: TOTAL DAILY DOSE: 0.5 MG  UNIT DOSE: 0.5 MG
     Route: 048
     Dates: start: 20070827, end: 20080220

REACTIONS (3)
  - INTESTINAL OBSTRUCTION [None]
  - LARGE INTESTINAL HAEMORRHAGE [None]
  - MELAENA [None]
